FAERS Safety Report 12355682 (Version 3)
Quarter: 2016Q2

REPORT INFORMATION
  Report Type: Report from Study
  Country: CN (occurrence: CN)
  Receive Date: 20160511
  Receipt Date: 20160623
  Transmission Date: 20160815
  Serious: Yes (Hospitalization)
  Sender: FDA-Public Use
  Company Number: CN-ASTRAZENECA-2016SE45641

PATIENT
  Age: 33 Year
  Sex: Male
  Weight: 49 kg

DRUGS (6)
  1. BYETTA [Suspect]
     Active Substance: EXENATIDE
     Indication: DIABETES MELLITUS
     Route: 058
     Dates: start: 201601
  2. INSULIN [Concomitant]
     Active Substance: INSULIN NOS
     Indication: DIABETES MELLITUS
     Dosage: 14 UNITS, TWO TIMES  A DAY
     Route: 058
     Dates: start: 201512
  3. INSULIN [Concomitant]
     Active Substance: INSULIN NOS
     Indication: DIABETES MELLITUS
     Dosage: 24 UNITS, TWO TIMES A DAY
     Route: 058
     Dates: start: 201506
  4. INSULIN [Concomitant]
     Active Substance: INSULIN NOS
     Indication: DIABETES MELLITUS
     Dosage: 20 UNITS, TWO TIMES A DAY
     Route: 058
     Dates: start: 201603
  5. BYETTA [Suspect]
     Active Substance: EXENATIDE
     Indication: DIABETES MELLITUS
     Route: 058
     Dates: start: 201512, end: 201601
  6. INSULIN [Concomitant]
     Active Substance: INSULIN NOS
     Indication: DIABETES MELLITUS
     Dosage: 24 UNITS IN THE MORNING AND 18 UNITS IN THE EVENING
     Route: 058
     Dates: start: 201604

REACTIONS (7)
  - Flatulence [Unknown]
  - Weight increased [Recovered/Resolved]
  - Drug ineffective [Unknown]
  - Diabetes mellitus inadequate control [Recovered/Resolved]
  - Helicobacter infection [Unknown]
  - Weight decreased [Recovered/Resolved]
  - Hiccups [Not Recovered/Not Resolved]

NARRATIVE: CASE EVENT DATE: 201512
